FAERS Safety Report 5945309-5 (Version None)
Quarter: 2008Q4

REPORT INFORMATION
  Report Type: 
  Country: None (occurrence: None)
  Receive Date: 20081107
  Receipt Date: 20081027
  Transmission Date: 20090506
  Serious: Yes (Other)
  Sender: FDA-Public Use
  Company Number: US-ROCHE-595199

PATIENT
  Age: 63 Year
  Sex: Male

DRUGS (7)
  1. DACLIZUMAB [Suspect]
     Indication: IMMUNOSUPPRESSANT DRUG THERAPY
     Route: 065
  2. MYCOPHENOLATE MOFETIL [Suspect]
     Route: 065
  3. MYCOPHENOLATE MOFETIL [Suspect]
     Dosage: DOSE REDUCED
     Route: 065
  4. TACROLIMUS [Suspect]
     Route: 065
  5. TACROLIMUS [Suspect]
     Dosage: DOSE REDUCED
     Route: 065
  6. STEROID NOS [Suspect]
     Route: 065
  7. STEROID NOS [Suspect]
     Dosage: DOSE REDUCED
     Route: 065

REACTIONS (1)
  - BK VIRUS INFECTION [None]
